FAERS Safety Report 5474329-2 (Version None)
Quarter: 2007Q4

REPORT INFORMATION
  Report Type: 
  Country: None (occurrence: None)
  Receive Date: 20071002
  Receipt Date: 20070924
  Transmission Date: 20080405
  Serious: Yes (Other)
  Sender: FDA-Public Use
  Company Number: US-ASTRAZENECA-2007UW20432

PATIENT
  Age: 68 Year
  Sex: Female

DRUGS (6)
  1. SYMBICORT [Suspect]
     Route: 055
  2. AGGRENOX [Concomitant]
     Route: 048
  3. BENICAR HCT [Concomitant]
     Route: 048
  4. LIPITOR [Concomitant]
     Route: 048
  5. FOLEX [Concomitant]
     Route: 048
  6. LISINOPRIL [Concomitant]
     Route: 048

REACTIONS (4)
  - CONDITION AGGRAVATED [None]
  - COUGH [None]
  - HEADACHE [None]
  - NAUSEA [None]
